FAERS Safety Report 5352396-4 (Version None)
Quarter: 2007Q2

REPORT INFORMATION
  Report Type: 
  Country: None (occurrence: None)
  Receive Date: 20070607
  Receipt Date: 20070607
  Transmission Date: 20071010
  Serious: No
  Sender: FDA-Public Use
  Company Number: None

PATIENT
  Age: 25 Year
  Sex: Male
  Weight: 97.5234 kg

DRUGS (1)
  1. ABILIFY [Suspect]
     Indication: PSYCHOTIC DISORDER
     Dosage: 20 MG ONCE PER DAY PO
     Route: 048
     Dates: start: 20061108, end: 20070606

REACTIONS (3)
  - BACK PAIN [None]
  - DYSTONIA [None]
  - WEIGHT INCREASED [None]
